FAERS Safety Report 5902478-0 (Version None)
Quarter: 2008Q3

REPORT INFORMATION
  Report Type: 
  Country: None (occurrence: None)
  Receive Date: 20080929
  Receipt Date: 20080923
  Transmission Date: 20090109
  Serious: Yes (Life-Threatening, Hospitalization, Other)
  Sender: FDA-Public Use
  Company Number: NL-ASTRAZENECA-2008AC02520

PATIENT
  Age: 11849 Day
  Sex: Male
  Weight: 86 kg

DRUGS (1)
  1. ZOMIG [Suspect]
     Indication: MIGRAINE
     Route: 048
     Dates: start: 19980101, end: 20070301

REACTIONS (1)
  - VENTRICULAR TACHYCARDIA [None]
